FAERS Safety Report 4579806-4 (Version None)
Quarter: 2005Q1

REPORT INFORMATION
  Report Type: 
  Country: None (occurrence: None)
  Receive Date: 20050210
  Receipt Date: 20050131
  Transmission Date: 20050727
  Serious: Yes (Hospitalization)
  Sender: FDA-Public Use
  Company Number: 209419

PATIENT
  Age: 46 Year
  Sex: Female

DRUGS (2)
  1. HERCEPTIN [Suspect]
     Indication: BREAST CANCER
     Dosage: 348 MG  INTRAVENOUS
     Route: 042
     Dates: start: 20040128, end: 20040723
  2. ACETAMINOPHEN [Concomitant]

REACTIONS (2)
  - CATHETER RELATED COMPLICATION [None]
  - INTRACARDIAC THROMBUS [None]
